FAERS Safety Report 5736326-9 (Version None)
Quarter: 2008Q2

REPORT INFORMATION
  Report Type: 
  Country: None (occurrence: None)
  Receive Date: 20080513
  Receipt Date: 20080506
  Transmission Date: 20081010
  Serious: Yes (Other)
  Sender: FDA-Public Use
  Company Number: US-ELI_LILLY_AND_COMPANY-US200801005824

PATIENT
  Sex: Female
  Weight: 89.796 kg

DRUGS (20)
  1. BYETTA [Suspect]
     Indication: DIABETES MELLITUS
     Dosage: 5 UG, 2/D
     Route: 058
     Dates: start: 20050501, end: 20050601
  2. BYETTA [Suspect]
     Dosage: 10 UG, 2/D
     Route: 058
     Dates: start: 20050601
  3. METFORMIN HCL [Concomitant]
     Indication: DIABETES MELLITUS
     Dosage: 500 MG, EACH EVENING
     Dates: start: 20050501
  4. VYTORIN [Concomitant]
     Indication: CARDIAC DISORDER
  5. FUROSEMIDE [Concomitant]
     Indication: CARDIAC DISORDER
     Dosage: 40 MG, DAILY (1/D)
  6. PYRIDOXINE [Concomitant]
     Dosage: 50 MG, 3/D
  7. LISINOPRIL [Concomitant]
     Indication: CARDIAC DISORDER
     Dosage: 5 MG, DAILY (1/D)
  8. LEXAPRO [Concomitant]
     Dosage: 40 MG, DAILY (1/D)
  9. OSCAL [Concomitant]
     Indication: SUPPLEMENTATION THERAPY
     Dosage: 500 MG, 2/D
  10. FOLIC ACID [Concomitant]
     Indication: SUPPLEMENTATION THERAPY
     Dosage: 1 MG, 3/D
  11. LEVOXYL [Concomitant]
     Indication: THYROID DISORDER
     Dosage: 1 MG, DAILY (1/D)
     Dates: start: 19950101
  12. CINNAMON [Concomitant]
     Dosage: 500 MG, 2/D
     Dates: start: 19950101
  13. MAGNESIUM [Concomitant]
     Indication: SUPPLEMENTATION THERAPY
     Dosage: UNK, 2/D
     Dates: start: 19950101
  14. VITAMIN B-12 [Concomitant]
     Dosage: UNK, DAILY (1/D)
     Dates: start: 19950101
  15. VITAMIN B6 [Concomitant]
     Dosage: 50 MG, 3/D
  16. KLOR-CON [Concomitant]
     Dosage: 10 MG, DAILY (1/D)
  17. POTASSIUM CHLORIDE [Concomitant]
     Indication: SUPPLEMENTATION THERAPY
     Dosage: UNK, DAILY (1/D)
  18. PROTONIX [Concomitant]
     Indication: GASTROOESOPHAGEAL REFLUX DISEASE
     Dosage: 40 MG, DAILY (1/D)
  19. SPIRIVA [Concomitant]
     Indication: DYSPNOEA
     Dosage: UNK, AS NEEDED
  20. OXYGEN [Concomitant]
     Dosage: 2 LITER, AS NEEDED
     Route: 045
     Dates: start: 20050101

REACTIONS (3)
  - ABDOMINAL PAIN [None]
  - ARTERIAL OCCLUSIVE DISEASE [None]
  - WEIGHT DECREASED [None]
